FAERS Safety Report 8764907 (Version 1)
Quarter: 2012Q4

REPORT INFORMATION
  Report Type: 
  Country: US (occurrence: US)
  Receive Date: 20120902
  Receipt Date: 20120902
  Transmission Date: 20130627
  Serious: No
  Sender: FDA-Public Use
  Company Number: US-TEVA-354896USA

PATIENT
  Sex: Male

DRUGS (2)
  1. NUVIGIL [Suspect]
     Indication: SOMNOLENCE
     Dosage: between 200 and 400 mg daily, either as one dose or split twice daily as he needed to
     Route: 048
     Dates: start: 201204, end: 201208
  2. ZOLOFT [Concomitant]

REACTIONS (3)
  - Urine amphetamine positive [Unknown]
  - Off label use [Unknown]
  - Incorrect dose administered [Unknown]
